FAERS Safety Report 8515312-X (Version None)
Quarter: 2012Q3

REPORT INFORMATION
  Report Type: 
  Country: None (occurrence: None)
  Receive Date: 20120717
  Receipt Date: 20120705
  Transmission Date: 20120928
  Serious: No
  Sender: FDA-Public Use
  Company Number: US-ASTRAZENECA-2012SE45871

PATIENT
  Age: 56 Year
  Sex: Female
  Weight: 74.8 kg

DRUGS (3)
  1. ASPIRIN [Concomitant]
     Indication: MIGRAINE
  2. CRESTOR [Concomitant]
     Indication: BLOOD CHOLESTEROL ABNORMAL
  3. ZOMIG [Suspect]
     Indication: MIGRAINE
     Route: 048

REACTIONS (4)
  - FATIGUE [None]
  - SNEEZING [None]
  - MULTIPLE ALLERGIES [None]
  - DRUG INEFFECTIVE [None]
